FAERS Safety Report 4517407-4 (Version None)
Quarter: 2004Q4

REPORT INFORMATION
  Report Type: 
  Country: None (occurrence: None)
  Receive Date: 20041022
  Receipt Date: 20040720
  Transmission Date: 20050328
  Serious: No
  Sender: FDA-Public Use
  Company Number: 800058

PATIENT
  Age: 65 Year
  Sex: Male
  Weight: 80.7403 kg

DRUGS (25)
  1. EXTRANEAL [Suspect]
     Indication: PERITONEAL DIALYSIS
     Dosage: 16 L; QD; INTRAPERITONEAL
     Route: 033
     Dates: start: 20040518
  2. REGLAN [Concomitant]
  3. PERCOCET [Concomitant]
  4. EPOGEN [Concomitant]
  5. LEVBID [Concomitant]
  6. COUMADIN [Concomitant]
  7. HECTOROL [Concomitant]
  8. RENAGEL [Concomitant]
  9. AMIODARONE [Concomitant]
  10. MYSOLINE ^ICI^ [Concomitant]
  11. AMBIEN [Concomitant]
  12. FOLTX [Concomitant]
  13. PHENERGAN VC [Concomitant]
  14. POTASSIUM CHLORIDE [Concomitant]
  15. IMURAN [Concomitant]
  16. NASONEX [Concomitant]
  17. DARVOCET-N 100 [Concomitant]
  18. BACTROBAN [Concomitant]
  19. NEPHROCAPS [Concomitant]
  20. VITAMIN E [Concomitant]
  21. MEGACE [Concomitant]
  22. PRILOSEC [Concomitant]
  23. ASPIRIN [Concomitant]
  24. LASIX [Concomitant]
  25. PRAVACHOL [Concomitant]

REACTIONS (2)
  - PETECHIAE [None]
  - RASH VESICULAR [None]
